FAERS Safety Report 6376340-6 (Version None)
Quarter: 2009Q3

REPORT INFORMATION
  Report Type: 
  Country: None (occurrence: None)
  Receive Date: 20090922
  Receipt Date: 20090922
  Transmission Date: 20100115
  Serious: No
  Sender: FDA-Public Use
  Company Number: None

PATIENT
  Age: 60 Year
  Sex: Male
  Weight: 99.7913 kg

DRUGS (6)
  1. LYRICA [Suspect]
     Indication: BONE PAIN
     Dosage: 100 MG BID PO
     Route: 048
     Dates: start: 20081112, end: 20090311
  2. LYRICA [Suspect]
     Indication: PERIARTHRITIS
     Dosage: 100 MG BID PO
     Route: 048
     Dates: start: 20081112, end: 20090311
  3. PERCOCET [Concomitant]
  4. GEMFIBROZIL [Concomitant]
  5. BUPROPION HCL [Concomitant]
  6. NEURONTIN [Concomitant]

REACTIONS (2)
  - BLINDNESS [None]
  - OPTIC ISCHAEMIC NEUROPATHY [None]
